FAERS Safety Report 5983613-5 (Version None)
Quarter: 2008Q4

REPORT INFORMATION
  Report Type: 
  Country: None (occurrence: None)
  Receive Date: 20081205
  Receipt Date: 20081205
  Transmission Date: 20090506
  Serious: Yes (Other)
  Sender: FDA-Public Use
  Company Number: None

PATIENT
  Sex: Female

DRUGS (5)
  1. LAMOTRIGINE [Suspect]
     Indication: BIPOLAR DISORDER
     Dosage: ONE PO QD
     Route: 048
     Dates: start: 20081111, end: 20081117
  2. EFFEXOR XR [Concomitant]
  3. ALPRAZOLAM EXTENDED-RELEASE [Concomitant]
  4. ZYPREXA [Concomitant]
  5. GEODON [Concomitant]

REACTIONS (3)
  - AGITATION [None]
  - ANXIETY [None]
  - THERAPEUTIC RESPONSE UNEXPECTED WITH DRUG SUBSTITUTION [None]
